FAERS Safety Report 9412003 (Version 1)
Quarter: 2013Q2

REPORT INFORMATION
  Report Type: Spontaneous
  Country: US (occurrence: None)
  Receive Date: 20130513
  Receipt Date: 20130513
  Transmission Date: 20140414
  Serious: Yes (Other)
  Sender: FDA-Public Use
  Company Number: 2013P1005537

PATIENT
  Sex: 0

DRUGS (1)
  1. LISINOPRIL [Suspect]
     Route: 048

REACTIONS (2)
  - Hypotension [None]
  - Incorrect dose administered [None]
